FAERS Safety Report 10243535 (Version 1)
Quarter: 2014Q2

REPORT INFORMATION
  Report Type: Spontaneous
  Country: US (occurrence: None)
  Receive Date: 20140616
  Receipt Date: 20140616
  Transmission Date: 20141212
  Serious: Yes (Other)
  Sender: FDA-Public Use
  Company Number: None

PATIENT
  Age: 87 Year
  Sex: Male
  Weight: 80.74 kg

DRUGS (1)
  1. TERAZOSIN [Suspect]
     Indication: PROSTATIC DISORDER
     Dosage: 1/DAY, ONCE DAILY, TAKEN BY MOUTH
     Route: 048
     Dates: start: 20130917, end: 20131017

REACTIONS (2)
  - Urinary incontinence [None]
  - Oedema peripheral [None]
